FAERS Safety Report 16994173 (Version 5)
Quarter: 2020Q2

REPORT INFORMATION
  Report Type: Report from Study
  Country: US (occurrence: US)
  Receive Date: 20191105
  Receipt Date: 20200421
  Transmission Date: 20200713
  Serious: Yes (Death)
  Sender: FDA-Public Use
  Company Number: NVSC2019US024836

PATIENT
  Age: 85 Year
  Sex: Male
  Weight: 152 kg

DRUGS (28)
  1. VITAMIN D [Concomitant]
     Active Substance: VITAMIN D NOS
     Indication: PRODUCT USED FOR UNKNOWN INDICATION
     Dosage: 1000 U, PRN
     Route: 048
  2. ASPIRIN. [Concomitant]
     Active Substance: ASPIRIN
     Indication: CORONARY ARTERY DISEASE
     Dosage: 81 MG, QD
     Route: 065
  3. ZOLPIDEM TARTRATE. [Concomitant]
     Active Substance: ZOLPIDEM TARTRATE
     Indication: PRODUCT USED FOR UNKNOWN INDICATION
     Dosage: 10 MG, QHS
     Route: 048
  4. ENTRESTO [Suspect]
     Active Substance: SACUBITRIL\VALSARTAN
     Indication: ISCHAEMIC CARDIOMYOPATHY
     Route: 065
  5. ZYRTEC [Concomitant]
     Active Substance: CETIRIZINE HYDROCHLORIDE
     Indication: PRODUCT USED FOR UNKNOWN INDICATION
     Dosage: 10 MG, PRN
     Route: 048
  6. MAGNESIUM [Concomitant]
     Active Substance: MAGNESIUM
     Indication: PRODUCT USED FOR UNKNOWN INDICATION
     Dosage: 400 MG, PRN
     Route: 048
  7. TAMSULOSIN HYDROCHLORIDE. [Concomitant]
     Active Substance: TAMSULOSIN HYDROCHLORIDE
     Indication: PRODUCT USED FOR UNKNOWN INDICATION
     Dosage: 0.4 MG, QD
     Route: 048
  8. LOVASTATIN. [Concomitant]
     Active Substance: LOVASTATIN
     Indication: CORONARY ARTERY DISEASE
     Dosage: 20 MG, QD
     Route: 048
  9. CLONAZEPAM. [Concomitant]
     Active Substance: CLONAZEPAM
     Indication: PRODUCT USED FOR UNKNOWN INDICATION
     Dosage: 0.5 DF (0.5 MG), QHS
     Route: 048
  10. IRON [Concomitant]
     Active Substance: IRON
     Indication: PRODUCT USED FOR UNKNOWN INDICATION
     Dosage: 1 DF, QD
     Route: 048
  11. ALBUTEROL. [Concomitant]
     Active Substance: ALBUTEROL
     Indication: PRODUCT USED FOR UNKNOWN INDICATION
     Route: 065
  12. METOPROLOL SUCCINATE. [Concomitant]
     Active Substance: METOPROLOL SUCCINATE
     Indication: ISCHAEMIC CARDIOMYOPATHY
  13. ENTRESTO [Suspect]
     Active Substance: SACUBITRIL\VALSARTAN
     Indication: CARDIAC FAILURE CHRONIC
     Dosage: 1 DF (49 MG SACUBITRIL, 51 MG VALSARTAN), BID
     Route: 048
  14. ENTRESTO [Suspect]
     Active Substance: SACUBITRIL\VALSARTAN
     Indication: ESSENTIAL HYPERTENSION
  15. ASPIRIN. [Concomitant]
     Active Substance: ASPIRIN
     Indication: PERIPHERAL ARTERIAL OCCLUSIVE DISEASE
  16. ASPIRIN. [Concomitant]
     Active Substance: ASPIRIN
     Indication: CAROTID ARTERY DISEASE
  17. FUROSEMIDE. [Concomitant]
     Active Substance: FUROSEMIDE
     Indication: CARDIAC FAILURE CONGESTIVE
     Dosage: 1.5 DF (1 TAB IN AM AND HALF TABLET IN PM), QD
     Route: 065
  18. FLOMAX [Concomitant]
     Active Substance: TAMSULOSIN HYDROCHLORIDE
     Indication: PRODUCT USED FOR UNKNOWN INDICATION
     Dosage: 0.4 MG, QD
     Route: 048
  19. GLIPIZIDE. [Concomitant]
     Active Substance: GLIPIZIDE
     Indication: PRODUCT USED FOR UNKNOWN INDICATION
     Dosage: 10 MG, BID
     Route: 048
  20. METOPROLOL SUCCINATE. [Concomitant]
     Active Substance: METOPROLOL SUCCINATE
     Indication: ESSENTIAL HYPERTENSION
  21. TESTOSTERONE CYPIONATE. [Concomitant]
     Active Substance: TESTOSTERONE CYPIONATE
     Indication: PRODUCT USED FOR UNKNOWN INDICATION
     Dosage: 100 MG/ML SOULTION 1 ML
     Route: 030
  22. METOPROLOL SUCCINATE. [Concomitant]
     Active Substance: METOPROLOL SUCCINATE
     Indication: CORONARY ARTERY DISEASE
     Dosage: 1 DF, QD
     Route: 048
  23. ENTRESTO [Suspect]
     Active Substance: SACUBITRIL\VALSARTAN
     Indication: CORONARY ARTERY DISEASE
     Dosage: 1 DF (24 MG SACUBITRIL, 26 MG VALSARTAN), BID
     Route: 048
     Dates: start: 201810
  24. ENTRESTO [Suspect]
     Active Substance: SACUBITRIL\VALSARTAN
     Indication: CHRONIC LEFT VENTRICULAR FAILURE
     Route: 065
  25. PERCOCET [Suspect]
     Active Substance: ACETAMINOPHEN\OXYCODONE HYDROCHLORIDE
     Indication: PRODUCT USED FOR UNKNOWN INDICATION
     Route: 065
  26. INSULIN ASPART [Concomitant]
     Active Substance: INSULIN ASPART
     Indication: PRODUCT USED FOR UNKNOWN INDICATION
     Dosage: 1 DF (100 UNIT/ML)
     Route: 058
  27. LOVASTATIN. [Concomitant]
     Active Substance: LOVASTATIN
     Indication: TYPE V HYPERLIPIDAEMIA
  28. GLIMEPIRIDE. [Concomitant]
     Active Substance: GLIMEPIRIDE
     Indication: PRODUCT USED FOR UNKNOWN INDICATION
     Dosage: 4 MG, BID
     Route: 048

REACTIONS (7)
  - Ill-defined disorder [Unknown]
  - Death [Fatal]
  - Drug intolerance [Unknown]
  - Oedema peripheral [Unknown]
  - Dizziness [Unknown]
  - Hypotension [Unknown]
  - Weight increased [Unknown]

NARRATIVE: CASE EVENT DATE: 20190925
